FAERS Safety Report 4737883-1 (Version None)
Quarter: 2005Q3

REPORT INFORMATION
  Report Type: 
  Country: None (occurrence: None)
  Receive Date: 20050809
  Receipt Date: 20050728
  Transmission Date: 20060218
  Serious: Yes (Other)
  Sender: FDA-Public Use
  Company Number: US-JNJFOC-20050800239

PATIENT
  Sex: Male
  Weight: 58.06 kg

DRUGS (34)
  1. REMICADE [Suspect]
     Indication: RHEUMATOID ARTHRITIS
     Route: 042
     Dates: end: 20001227
  2. CELEBREX [Concomitant]
  3. METHOTREXATE [Concomitant]
  4. PRILOSEC [Concomitant]
  5. KENALOG [Concomitant]
  6. ORINASE [Concomitant]
  7. LEUCOVORIN CALCIUM [Concomitant]
  8. FOLIC ACID [Concomitant]
  9. MYSOLINE [Concomitant]
  10. VIAGRA [Concomitant]
  11. ARAVA [Concomitant]
  12. PREVICID [Concomitant]
  13. MSM [Concomitant]
  14. ACTONEL [Concomitant]
  15. CALCIUM GLUCONATE [Concomitant]
  16. TUMS [Concomitant]
  17. NEXIUM [Concomitant]
  18. HYDROCHLOROTHIAZIDE [Concomitant]
  19. ADVAIR DISKUS 100/50 [Concomitant]
  20. ADVAIR DISKUS 100/50 [Concomitant]
  21. DIDRONEL [Concomitant]
  22. ASPIRIN [Concomitant]
  23. TESTOSTERONE PATCH [Concomitant]
  24. TRAZADONE [Concomitant]
  25. ALPRAZOLAN [Concomitant]
  26. PREDNISONE [Concomitant]
  27. TYLENOL (CAPLET) [Concomitant]
  28. ANTIVERT [Concomitant]
  29. ANTIVERT [Concomitant]
  30. PLAQUENIL [Concomitant]
  31. AZULFIDINE [Concomitant]
  32. INSULIN [Concomitant]
  33. CARAFATE [Concomitant]
  34. TYLENOL (CAPLET) [Concomitant]

REACTIONS (1)
  - DIFFUSE LARGE B-CELL LYMPHOMA [None]
